FAERS Safety Report 17258395 (Version 1)
Quarter: 2020Q1

REPORT INFORMATION
  Report Type: Spontaneous
  Country: JP (occurrence: JP)
  Receive Date: 20200110
  Receipt Date: 20200110
  Transmission Date: 20200409
  Serious: Yes (Hospitalization, Other)
  Sender: FDA-Public Use
  Company Number: JP-PFIZER INC-2019396193

PATIENT
  Age: 53 Year
  Sex: Female
  Weight: 50.45 kg

DRUGS (3)
  1. CELECOX [Suspect]
     Active Substance: CELECOXIB
     Dosage: 200 MG, UNK
     Route: 048
     Dates: start: 20190606, end: 20190628
  2. REBAMIPIDE [Suspect]
     Active Substance: REBAMIPIDE
     Dosage: 100 MG, UNK
     Route: 048
     Dates: start: 20190606, end: 20190628
  3. AZULFIDINE EN-TABS [Suspect]
     Active Substance: SULFASALAZINE
     Indication: RHEUMATOID ARTHRITIS
     Dosage: 500 MG, 1X/DAY
     Route: 048
     Dates: start: 20190606, end: 20190628

REACTIONS (12)
  - Alanine aminotransferase increased [Unknown]
  - Headache [Unknown]
  - Pruritus [Unknown]
  - Drug eruption [Recovered/Resolved]
  - Erythema [Unknown]
  - Aspartate aminotransferase increased [Unknown]
  - Pyrexia [Unknown]
  - Drug hypersensitivity [Unknown]
  - C-reactive protein increased [Unknown]
  - Liver disorder [Unknown]
  - Vomiting [Unknown]
  - Nausea [Unknown]

NARRATIVE: CASE EVENT DATE: 20190624
